FAERS Safety Report 18157953 (Version 1)
Quarter: 2020Q3

REPORT INFORMATION
  Report Type: Spontaneous
  Country: US (occurrence: US)
  Receive Date: 20200817
  Receipt Date: 20200817
  Transmission Date: 20201103
  Serious: Yes (Hospitalization)
  Sender: FDA-Public Use
  Company Number: US-PFIZER INC-2020312040

PATIENT
  Age: 57 Year
  Sex: Female
  Weight: 49.89 kg

DRUGS (2)
  1. SUTENT [Suspect]
     Active Substance: SUNITINIB MALATE
     Indication: NEUROENDOCRINE TUMOUR
     Dosage: 37.5 MG, DAILY(3 CAPS)
     Route: 048
     Dates: start: 20200702
  2. SUTENT [Suspect]
     Active Substance: SUNITINIB MALATE
     Dosage: 12.5 MG, DAILY, (REDUCED THE DOSE (TO ONE CAPSULE DAILY) ABOUT ONE WEEK AGO)
     Dates: start: 2020

REACTIONS (8)
  - Uterine leiomyoma [Recovering/Resolving]
  - Constipation [Unknown]
  - Pyrexia [Unknown]
  - Colitis [Recovering/Resolving]
  - Pain [Recovering/Resolving]
  - Influenza like illness [Unknown]
  - Stomatitis [Unknown]
  - Ageusia [Unknown]

NARRATIVE: CASE EVENT DATE: 2020
